FAERS Safety Report 12365485 (Version 1)
Quarter: 2016Q2

REPORT INFORMATION
  Report Type: Spontaneous
  Country: US (occurrence: None)
  Receive Date: 20160512
  Receipt Date: 20160512
  Transmission Date: 20160815
  Serious: No
  Sender: FDA-Public Use
  Company Number: None

PATIENT
  Age: 54 Year
  Sex: Male

DRUGS (7)
  1. GLYBURIDE. [Suspect]
     Active Substance: GLYBURIDE
  2. LIPITOR [Suspect]
     Active Substance: ATORVASTATIN CALCIUM
  3. HUMALOG [Concomitant]
     Active Substance: INSULIN LISPRO
  4. LEVEMIR [Suspect]
     Active Substance: INSULIN DETEMIR
  5. TOUJEO [Suspect]
     Active Substance: INSULIN GLARGINE
  6. METFORMIN [Suspect]
     Active Substance: METFORMIN HYDROCHLORIDE
  7. LANTUS [Suspect]
     Active Substance: INSULIN GLARGINE

REACTIONS (3)
  - Pain [None]
  - Weight abnormal [None]
  - Blood glucose decreased [None]
